FAERS Safety Report 8216771-2 (Version None)
Quarter: 2012Q1

REPORT INFORMATION
  Report Type: 
  Country: None (occurrence: None)
  Receive Date: 20120316
  Receipt Date: 20120305
  Transmission Date: 20120608
  Serious: Yes (Hospitalization)
  Sender: FDA-Public Use
  Company Number: US-ROCHE-GNE254540

PATIENT
  Sex: Female

DRUGS (26)
  1. CALCIUM CARBONATE [Concomitant]
     Indication: DYSPEPSIA
  2. ZANTAC [Concomitant]
     Indication: PRURITUS
  3. EPIPEN [Concomitant]
     Indication: ANAPHYLACTIC REACTION
  4. NEURONTIN [Concomitant]
     Indication: FIBROMYALGIA
     Dosage: UNK
  5. OMALIZUMAB [Suspect]
     Indication: ASTHMA
     Dosage: 375 MG, Q2W
     Route: 065
     Dates: start: 20070718, end: 20081029
  6. PREDNISONE [Concomitant]
     Indication: BRONCHITIS
  7. MULTI-VITAMINS [Concomitant]
     Indication: PREGNANCY
  8. ATROVENT [Concomitant]
     Indication: ASTHMA
     Dosage: UNK
  9. ZANAFLEX [Concomitant]
     Indication: BACK PAIN
     Dosage: UNK
  10. VITAMIN D [Concomitant]
     Indication: VITAMIN D DEFICIENCY
  11. ALBUTEROL [Concomitant]
     Indication: ASTHMA
  12. OMEPRAZOLE [Concomitant]
     Indication: ULCER
  13. FLONASE [Concomitant]
     Indication: HYPERSENSITIVITY
     Dosage: UNK
  14. LEVAQUIN [Concomitant]
     Indication: BRONCHITIS
     Dosage: UNK
  15. MULTI-VITAMIN SUPPLEMENT [Concomitant]
     Indication: PROPHYLAXIS
  16. ADVAIR DISKUS 100/50 [Concomitant]
     Indication: ASTHMA
  17. SPIRIVA [Concomitant]
     Indication: ASTHMA
  18. VICODIN [Concomitant]
     Indication: CHEST PAIN
  19. TYLENOL [Concomitant]
     Indication: HEADACHE
  20. ALLEGRA [Concomitant]
     Indication: HYPERSENSITIVITY
  21. MIDRIN [Concomitant]
     Indication: MIGRAINE
  22. COMBIVENT [Concomitant]
     Indication: ASTHMA
  23. ZEGERID [Concomitant]
     Indication: UNEVALUABLE EVENT
     Dosage: UNK
  24. SYNTHROID [Concomitant]
     Indication: HYPOTHYROIDISM
  25. FLEXERIL [Concomitant]
     Indication: BACK PAIN
  26. TRAMADOL HCL [Concomitant]
     Indication: ARTHRITIS
     Dosage: UNK

REACTIONS (2)
  - MATERNAL EXPOSURE DURING PREGNANCY [None]
  - ASTHMA [None]
